FAERS Safety Report 4850618-7 (Version None)
Quarter: 2005Q4

REPORT INFORMATION
  Report Type: 
  Country: None (occurrence: None)
  Receive Date: 20051212
  Receipt Date: 20050817
  Transmission Date: 20060501
  Serious: Yes (Hospitalization, Other)
  Sender: FDA-Public Use
  Company Number: DE-AMGEN-UK146785

PATIENT
  Sex: Female

DRUGS (7)
  1. MIMPARA [Suspect]
     Indication: HYPERPARATHYROIDISM SECONDARY
     Route: 048
     Dates: start: 20050721, end: 20050728
  2. AMLODIPINE [Concomitant]
     Route: 065
  3. DREISAVIT [Concomitant]
     Route: 065
  4. BELOC ZOK [Concomitant]
     Route: 065
  5. CALCIUM ACETATE [Concomitant]
     Route: 065
  6. L-THYROXIN [Concomitant]
     Route: 065
  7. PRAVASTATIN [Concomitant]
     Route: 048

REACTIONS (2)
  - ABDOMINAL PAIN [None]
  - NAUSEA [None]
